FAERS Safety Report 25135644 (Version 1)
Quarter: 2025Q1

REPORT INFORMATION
  Report Type: Spontaneous
  Country: CN (occurrence: CN)
  Receive Date: 20250328
  Receipt Date: 20250328
  Transmission Date: 20250408
  Serious: Yes (Other)
  Sender: ROCHE
  Company Number: CN-ROCHE-10000235297

PATIENT
  Age: 58 Year
  Sex: Male

DRUGS (12)
  1. BEVACIZUMAB [Suspect]
     Active Substance: BEVACIZUMAB
     Indication: Lung adenocarcinoma
     Dosage: 2 CYCLES
     Route: 065
     Dates: start: 201802
  2. BEVACIZUMAB [Suspect]
     Active Substance: BEVACIZUMAB
     Dosage: 4 CYCLES
     Route: 065
     Dates: start: 201803
  3. BEVACIZUMAB [Suspect]
     Active Substance: BEVACIZUMAB
     Dosage: 4 CYCLES
     Route: 065
     Dates: start: 201903
  4. ICOTINIB [Suspect]
     Active Substance: ICOTINIB
     Indication: Lung adenocarcinoma
     Route: 065
  5. AFATINIB [Suspect]
     Active Substance: AFATINIB
     Indication: Lung adenocarcinoma
     Route: 048
  6. ACARBOSE [Concomitant]
     Active Substance: ACARBOSE
  7. PEMETREXED [Concomitant]
     Active Substance: PEMETREXED
     Dosage: 0.9 G/KG 3QW; 4 CYCLES
     Route: 065
     Dates: start: 201706, end: 201708
  8. PEMETREXED [Concomitant]
     Active Substance: PEMETREXED
     Route: 065
     Dates: start: 201802
  9. CISPLATIN [Concomitant]
     Active Substance: CISPLATIN
     Dosage: 4 CYCLES
     Dates: start: 201706, end: 201708
  10. CISPLATIN [Concomitant]
     Active Substance: CISPLATIN
     Route: 065
     Dates: start: 201802
  11. NEDAPLATIN [Concomitant]
     Active Substance: NEDAPLATIN
     Dosage: 4 CYCLES
     Dates: start: 201803
  12. DOCETAXEL [Concomitant]
     Active Substance: DOCETAXEL
     Dosage: 4 CYCLES
     Route: 065
     Dates: start: 201803

REACTIONS (4)
  - Mouth ulceration [Recovering/Resolving]
  - Dermatitis acneiform [Recovering/Resolving]
  - Pruritus [Recovering/Resolving]
  - Disease progression [Unknown]

NARRATIVE: CASE EVENT DATE: 20190301
